FAERS Safety Report 12978500 (Version 1)
Quarter: 2016Q4

REPORT INFORMATION
  Report Type: Spontaneous
  Country: FR (occurrence: FR)
  Receive Date: 20161128
  Receipt Date: 20161128
  Transmission Date: 20170207
  Serious: Yes (Death)
  Sender: FDA-Public Use
  Company Number: FR-JNJFOC-20161126809

PATIENT
  Age: 29 Year
  Sex: Male

DRUGS (1)
  1. DUROGESIC [Suspect]
     Active Substance: FENTANYL
     Indication: BACK PAIN
     Dosage: 2 PATCHES (25 AND 50 UG/HR)
     Route: 062

REACTIONS (2)
  - Drug diversion [Fatal]
  - Therapy naive [Fatal]
